FAERS Safety Report 6719454-0 (Version None)
Quarter: 2010Q2

REPORT INFORMATION
  Report Type: 
  Country: None (occurrence: None)
  Receive Date: 20100506
  Receipt Date: 20100423
  Transmission Date: 20101027
  Serious: Yes (Death, Hospitalization, Other)
  Sender: FDA-Public Use
  Company Number: 2010EN000138

PATIENT
  Age: 42 Year
  Sex: Female

DRUGS (6)
  1. ONCASPAR [Suspect]
     Indication: ACUTE LYMPHOCYTIC LEUKAEMIA
     Dosage: 2500 IU/M2, X1;IV
     Route: 042
     Dates: start: 20100415, end: 20100415
  2. PREDNISONE TAB [Suspect]
     Indication: ACUTE LYMPHOCYTIC LEUKAEMIA
     Dosage: 40 MG/M**2;BID; PO
     Route: 048
     Dates: start: 20100412, end: 20100412
  3. VINCRISTINE [Suspect]
     Indication: ACUTE LYMPHOCYTIC LEUKAEMIA
     Dosage: 2MG; X1;IV
     Route: 042
     Dates: start: 20100412, end: 20100412
  4. DOXORUBICIN HCL [Suspect]
     Indication: ACUTE LYMPHOCYTIC LEUKAEMIA
     Dosage: 30 MG; QD; IV
     Route: 042
     Dates: start: 20100412, end: 20100413
  5. METHOTREXATE [Suspect]
     Indication: ACUTE LYMPHOCYTIC LEUKAEMIA
     Dosage: 40 MG;X1; IV
     Route: 042
     Dates: start: 20100414, end: 20100414
  6. CYTARABINE [Suspect]
     Indication: ACUTE LYMPHOCYTIC LEUKAEMIA
     Dosage: 50 MG;X1; INTH
     Route: 037
     Dates: start: 20100419, end: 20100419

REACTIONS (9)
  - BACILLUS INFECTION [None]
  - BRAIN HERNIATION [None]
  - GENERAL PHYSICAL HEALTH DETERIORATION [None]
  - HYPOTENSION [None]
  - NERVOUS SYSTEM DISORDER [None]
  - REFRACTORINESS TO PLATELET TRANSFUSION [None]
  - RESPIRATORY FAILURE [None]
  - SEPSIS [None]
  - THROMBOCYTOPENIA [None]
